FAERS Safety Report 23061163 (Version 1)
Quarter: 2023Q4

REPORT INFORMATION
  Report Type: Spontaneous
  Country: GB (occurrence: GB)
  Receive Date: 20231013
  Receipt Date: 20231013
  Transmission Date: 20240109
  Serious: Yes (Other)
  Sender: FDA-Public Use
  Company Number: GB-MHRA-MED-202309221156276410-VNDKL

PATIENT
  Age: 65 Year
  Sex: Female
  Weight: 56 kg

DRUGS (2)
  1. AMOXICILLIN\CLAVULANATE POTASSIUM [Suspect]
     Active Substance: AMOXICILLIN\CLAVULANATE POTASSIUM
     Indication: Biopsy breast
     Dosage: UNK UNK, TID, 500/125MG THREE TIMES A DAY
     Route: 065
     Dates: start: 20230915, end: 20230921
  2. UNSPECIFIED INGREDIENT [Concomitant]
     Active Substance: UNSPECIFIED INGREDIENT
     Indication: Product used for unknown indication
     Route: 065

REACTIONS (3)
  - Myalgia [Not Recovered/Not Resolved]
  - Paraesthesia [Unknown]
  - Muscle discomfort [Unknown]

NARRATIVE: CASE EVENT DATE: 20230916
